FAERS Safety Report 7560117-X (Version None)
Quarter: 2011Q2

REPORT INFORMATION
  Report Type: 
  Country: None (occurrence: None)
  Receive Date: 20110621
  Receipt Date: 20110601
  Transmission Date: 20111010
  Serious: Yes (Hospitalization)
  Sender: FDA-Public Use
  Company Number: A0871259A

PATIENT
  Age: 52 Year
  Sex: Female
  Weight: 80.9 kg

DRUGS (8)
  1. LIPITOR [Concomitant]
  2. WELLBUTRIN [Concomitant]
  3. GLYBURIDE [Concomitant]
  4. GLYNASE [Concomitant]
  5. GLUCOVANCE [Concomitant]
  6. ALBUTEROL SULFATE AUTOHALER [Concomitant]
  7. PULMICORT [Concomitant]
  8. AVANDIA [Suspect]
     Dosage: 8MG PER DAY
     Route: 048
     Dates: start: 20000101, end: 20050101

REACTIONS (3)
  - ANGINA UNSTABLE [None]
  - CORONARY ARTERY DISEASE [None]
  - ACUTE MYOCARDIAL INFARCTION [None]
